FAERS Safety Report 8730265 (Version 2)
Quarter: 2013Q1

REPORT INFORMATION
  Report Type: Spontaneous
  Country: US (occurrence: US)
  Receive Date: 20120817
  Receipt Date: 20130204
  Transmission Date: 20140127
  Serious: No
  Sender: FDA-Public Use
  Company Number: US-PFIZER INC-2012198675

PATIENT
  Age: 54 Year
  Sex: Female
  Weight: 77.1 kg

DRUGS (9)
  1. LYRICA [Suspect]
     Indication: PAIN IN EXTREMITY
     Dosage: 50 MG, DAILY
     Route: 048
     Dates: start: 201204
  2. LYRICA [Suspect]
     Indication: ARTHRALGIA
  3. LYRICA [Suspect]
     Indication: GOUT
  4. LYRICA [Suspect]
     Indication: ARTHRITIS
  5. AMLODIPINE/TELMISARTAN [Concomitant]
     Indication: HYPERTENSION
     Dosage: UNK, DAILY
  6. WELCHOL [Concomitant]
     Indication: GASTRIC DISORDER
     Dosage: 1250 MG, DAILY
     Route: 048
  7. ALLOPURINOL [Concomitant]
     Dosage: 300 MG, DAILY
     Dates: start: 201008
  8. CYMBALTA [Concomitant]
     Dosage: 60 MG, DAILY
     Dates: start: 201009
  9. DEXLANSOPRAZOLE [Concomitant]
     Dosage: 60 MG, DAILY
     Dates: start: 201007

REACTIONS (1)
  - Wheezing [Not Recovered/Not Resolved]
